FAERS Safety Report 7170443-4 (Version None)
Quarter: 2010Q4

REPORT INFORMATION
  Report Type: 
  Country: None (occurrence: None)
  Receive Date: 20101217
  Receipt Date: 20101212
  Transmission Date: 20110411
  Serious: Yes (Other)
  Sender: FDA-Public Use
  Company Number: US-ROCHE-748033

PATIENT
  Sex: Female

DRUGS (2)
  1. PEGASYS [Suspect]
     Indication: HEPATITIS C
     Dosage: FORM:PREFILLED SYRINGE
     Route: 058
     Dates: start: 20101003
  2. RIBAVIRIN [Suspect]
     Indication: HEPATITIS C
     Dosage: DIVIDED DOSES
     Route: 048
     Dates: start: 20101003

REACTIONS (9)
  - AMNESIA [None]
  - COGNITIVE DISORDER [None]
  - DYSPNOEA EXERTIONAL [None]
  - HALLUCINATION, VISUAL [None]
  - MUSCULAR WEAKNESS [None]
  - NAUSEA [None]
  - RED BLOOD CELL COUNT DECREASED [None]
  - VISION BLURRED [None]
  - VOMITING [None]
